FAERS Safety Report 10286137 (Version 2)
Quarter: 2014Q3

REPORT INFORMATION
  Report Type: Spontaneous
  Country: MX (occurrence: MX)
  Receive Date: 20140709
  Receipt Date: 20140722
  Transmission Date: 20150326
  Serious: Yes (Hospitalization)
  Sender: FDA-Public Use
  Company Number: MX-BAYER-2014-100258

PATIENT
  Age: 43 Year
  Sex: Male
  Weight: 72 kg

DRUGS (1)
  1. NEXAVAR [Suspect]
     Active Substance: SORAFENIB
     Indication: RENAL CANCER STAGE IV
     Dosage: 1 DF, (EVERY EIGHT HOURS) TID
     Route: 048
     Dates: start: 20140430, end: 20140625

REACTIONS (11)
  - Asthenia [Recovered/Resolved]
  - Pleural effusion [Recovered/Resolved]
  - Chest pain [Recovered/Resolved]
  - Acne [Not Recovered/Not Resolved]
  - Dyspnoea [Recovered/Resolved]
  - Abdominal distension [Recovered/Resolved]
  - Dry skin [Not Recovered/Not Resolved]
  - Aphonia [Recovered/Resolved]
  - Cough [Recovered/Resolved]
  - Skin discolouration [Not Recovered/Not Resolved]
  - Pruritus [Not Recovered/Not Resolved]

NARRATIVE: CASE EVENT DATE: 20140530
